APPROVED DRUG PRODUCT: NANDROLONE PHENPROPIONATE
Active Ingredient: NANDROLONE PHENPROPIONATE
Strength: 50MG/ML
Dosage Form/Route: INJECTABLE;INJECTION
Application: A087488 | Product #001
Applicant: WATSON LABORATORIES INC
Approved: Jun 17, 1983 | RLD: No | RS: No | Type: DISCN